FAERS Safety Report 15195279 (Version 1)
Quarter: 2018Q3

REPORT INFORMATION
  Report Type: Spontaneous
  Country: NL (occurrence: NL)
  Receive Date: 20180725
  Receipt Date: 20180725
  Transmission Date: 20181010
  Serious: Yes (Other)
  Sender: FDA-Public Use
  Company Number: NL-LINDE-NL-LHC-2018176

PATIENT
  Age: 31 Year
  Sex: Male

DRUGS (2)
  1. NITROUS OXIDE (GENERIC) [Suspect]
     Active Substance: NITROUS OXIDE
     Indication: SUBSTANCE USE
     Route: 065
  2. NITROUS OXIDE (GENERIC) [Suspect]
     Active Substance: NITROUS OXIDE

REACTIONS (3)
  - Drug abuse [Unknown]
  - Myelopathy [Recovered/Resolved]
  - Vitamin B12 deficiency [Recovered/Resolved]
